FAERS Safety Report 4718756-7 (Version None)
Quarter: 2005Q3

REPORT INFORMATION
  Report Type: 
  Country: None (occurrence: None)
  Receive Date: 20050719
  Receipt Date: 20050706
  Transmission Date: 20060218
  Serious: Yes (Hospitalization, Other)
  Sender: FDA-Public Use
  Company Number: USA0507102267

PATIENT
  Age: 14 Year
  Sex: Female

DRUGS (3)
  1. STRATTERA [Suspect]
     Dosage: 25 MG
  2. PAXIL [Concomitant]
  3. TRAZODONE HCL [Concomitant]

REACTIONS (2)
  - ABDOMINAL PAIN [None]
  - HEPATIC ENZYME INCREASED [None]
